FAERS Safety Report 11605755 (Version 1)
Quarter: 2015Q3

REPORT INFORMATION
  Report Type: Spontaneous
  Country: US (occurrence: US)
  Receive Date: 20150916
  Receipt Date: 20150916
  Transmission Date: 20151125
  Serious: No
  Sender: FDA-Public Use
  Company Number: US-ELI_LILLY_AND_COMPANY-US201403009123

PATIENT
  Sex: Female
  Weight: 82.54 kg

DRUGS (1)
  1. HUMALOG [Suspect]
     Active Substance: INSULIN LISPRO
     Indication: PRODUCT USED FOR UNKNOWN INDICATION
     Route: 065

REACTIONS (7)
  - Pruritus [Unknown]
  - Hypersensitivity [Unknown]
  - Blood glucose increased [Unknown]
  - Infusion site haemorrhage [Unknown]
  - Specific gravity body fluid increased [Unknown]
  - Blood glucose decreased [Unknown]
  - Skin irritation [Unknown]
